FAERS Safety Report 25554902 (Version 3)
Quarter: 2025Q4

REPORT INFORMATION
  Report Type: Spontaneous
  Country: US (occurrence: US)
  Receive Date: 20250715
  Receipt Date: 20251020
  Transmission Date: 20260118
  Serious: No
  Sender: DAIICHI
  Company Number: US-DAIICHI SANKYO, INC.-DS-2025-152704-ESAA

PATIENT
  Age: 49 Year
  Sex: Male

DRUGS (4)
  1. DATROWAY [Suspect]
     Active Substance: DATOPOTAMAB DERUXTECAN-DLNK
     Indication: Thymic carcinoma
     Dosage: UNK
     Route: 065
  2. DATROWAY [Suspect]
     Active Substance: DATOPOTAMAB DERUXTECAN-DLNK
     Dosage: 300 MG, ONCE EVERY 3 WK (INFUSE 300 MG INTRAVENOUSLY OVER 60 MINUTES ONCE EVERY 21 DAYS)
     Route: 042
     Dates: start: 20250714
  3. DATROWAY [Suspect]
     Active Substance: DATOPOTAMAB DERUXTECAN-DLNK
     Dosage: 500 MG, ONCE EVERY 3 WK
     Route: 042
  4. DATROWAY [Suspect]
     Active Substance: DATOPOTAMAB DERUXTECAN-DLNK
     Dosage: 500 MG
     Route: 042
     Dates: start: 20250717, end: 20251013

REACTIONS (2)
  - Disease progression [Unknown]
  - Off label use [Recovered/Resolved]

NARRATIVE: CASE EVENT DATE: 20250710
